FAERS Safety Report 8160293-4 (Version None)
Quarter: 2012Q1

REPORT INFORMATION
  Report Type: 
  Country: None (occurrence: None)
  Receive Date: 20120223
  Receipt Date: 20120223
  Transmission Date: 20120608
  Serious: No
  Sender: FDA-Public Use
  Company Number: None

PATIENT
  Age: 50 Year
  Sex: Female
  Weight: 57.152 kg

DRUGS (1)
  1. SEPTRA [Suspect]
     Indication: URINARY TRACT INFECTION
     Dosage: 1 PILL
     Route: 048
     Dates: start: 20120206, end: 20120209

REACTIONS (9)
  - ARTHRALGIA [None]
  - DRUG HYPERSENSITIVITY [None]
  - NECK PAIN [None]
  - CHILLS [None]
  - MALAISE [None]
  - PAIN [None]
  - MYALGIA [None]
  - INSOMNIA [None]
  - ABDOMINAL DISCOMFORT [None]
